FAERS Safety Report 8442420-4 (Version None)
Quarter: 2012Q2

REPORT INFORMATION
  Report Type: 
  Country: None (occurrence: None)
  Receive Date: 20120615
  Receipt Date: 20120117
  Transmission Date: 20120825
  Serious: No
  Sender: FDA-Public Use
  Company Number: US-NOVEN-12US003943

PATIENT
  Sex: Female
  Weight: 52.154 kg

DRUGS (2)
  1. DAYTRANA [Suspect]
     Indication: ATTENTION DEFICIT/HYPERACTIVITY DISORDER
     Dosage: 1 PATCH DAILY FOR 9 HRS
     Route: 062
     Dates: start: 20111201
  2. DAYTRANA [Suspect]
     Dosage: UNK
     Route: 062

REACTIONS (2)
  - INCORRECT DRUG ADMINISTRATION DURATION [None]
  - CHEST PAIN [None]
